FAERS Safety Report 6330605-2 (Version None)
Quarter: 2009Q3

REPORT INFORMATION
  Report Type: 
  Country: None (occurrence: None)
  Receive Date: 20090827
  Receipt Date: 20090814
  Transmission Date: 20100115
  Serious: Yes (Other)
  Sender: FDA-Public Use
  Company Number: GB-PFIZER INC-2009245155

PATIENT
  Age: 73 Year

DRUGS (6)
  1. CHAMPIX [Suspect]
     Dosage: UNK
     Route: 048
     Dates: start: 20090709, end: 20090730
  2. IPRATROPIUM [Concomitant]
     Dosage: 4 DF, 3X/DAY
     Route: 048
  3. DIGOXIN [Concomitant]
     Dosage: UNK
     Route: 048
  4. CANDESARTAN [Concomitant]
     Dosage: 2 DF, 3X/DAY
     Route: 048
  5. WARFARIN [Concomitant]
     Dosage: 1 DF, UNK
     Route: 048
  6. SALBUTAMOL [Concomitant]
     Dosage: 2 DF, UNK

REACTIONS (2)
  - HEART RATE INCREASED [None]
  - SKIN LESION [None]
